FAERS Safety Report 7996645-2 (Version None)
Quarter: 2011Q4

REPORT INFORMATION
  Report Type: 
  Country: None (occurrence: None)
  Receive Date: 20111221
  Receipt Date: 20111208
  Transmission Date: 20120403
  Serious: Yes (Hospitalization)
  Sender: FDA-Public Use
  Company Number: IE-ELI_LILLY_AND_COMPANY-IE201108005677

PATIENT
  Sex: Female
  Weight: 56.3 kg

DRUGS (8)
  1. FORTEO [Suspect]
     Dosage: 20 UG, QD
     Route: 058
     Dates: start: 20110801
  2. ARIMIDEX [Concomitant]
  3. CALCIUM CARBONATE [Concomitant]
  4. ANXICALM [Concomitant]
  5. PREDNISOLONE [Concomitant]
  6. LOVAZA [Concomitant]
  7. FORTEO [Suspect]
     Indication: OSTEOPOROSIS
     Dosage: 20 UG, QD
     Route: 058
     Dates: start: 20110701, end: 20110801
  8. CARDICOR [Concomitant]

REACTIONS (2)
  - FALL [None]
  - WRIST FRACTURE [None]
